FAERS Safety Report 4389244-5 (Version None)
Quarter: 2004Q2

REPORT INFORMATION
  Report Type: 
  Country: None (occurrence: None)
  Receive Date: 20040628
  Receipt Date: 20040622
  Transmission Date: 20050107
  Serious: No
  Sender: FDA-Public Use
  Company Number: 2004UW11054

PATIENT
  Age: 80 Year
  Sex: Male
  Weight: 67.1324 kg

DRUGS (9)
  1. CASODEX [Suspect]
     Indication: METASTASES TO BONE
     Dosage: 50 MG QD PO
     Route: 048
  2. CASODEX [Suspect]
     Indication: PROSTATE CANCER
     Dosage: 50 MG QD PO
     Route: 048
  3. LISINOPRIL [Concomitant]
  4. ZOCOR [Concomitant]
  5. ZOMETA [Concomitant]
  6. LUTEINIZING HORMONE-RELEASING HORMONE [Concomitant]
  7. ASPIRIN [Concomitant]
  8. CALCIUM [Concomitant]
  9. M.V.I. [Concomitant]

REACTIONS (3)
  - GASTROOESOPHAGEAL REFLUX DISEASE [None]
  - OESOPHAGEAL CARCINOMA [None]
  - SALIVARY HYPERSECRETION [None]
